FAERS Safety Report 4319775-5 (Version None)
Quarter: 2004Q1

REPORT INFORMATION
  Report Type: 
  Country: None (occurrence: None)
  Receive Date: 20040319
  Receipt Date: 20040316
  Transmission Date: 20041129
  Serious: Yes (Hospitalization)
  Sender: FDA-Public Use
  Company Number: FR-GLAXOSMITHKLINE-B0326740A

PATIENT
  Age: 53 Year
  Sex: Female

DRUGS (2)
  1. ZINNAT [Suspect]
     Indication: SINUSITIS
     Dosage: 250MG SINGLE DOSE
     Route: 048
     Dates: start: 20031010, end: 20031010
  2. DICLOFENAC SODIUM [Suspect]
     Indication: SINUSITIS
     Dosage: 1UNIT SINGLE DOSE
     Route: 048
     Dates: start: 20031010, end: 20031010

REACTIONS (2)
  - ANGIONEUROTIC OEDEMA [None]
  - MALAISE [None]
